FAERS Safety Report 20827760 (Version 1)
Quarter: 2022Q2

REPORT INFORMATION
  Report Type: Spontaneous
  Country: US (occurrence: None)
  Receive Date: 20220513
  Receipt Date: 20220513
  Transmission Date: 20220721
  Serious: Yes (Hospitalization)
  Sender: FDA-Public Use
  Company Number: None

PATIENT
  Age: 15 Year
  Sex: Female
  Weight: 60.75 kg

DRUGS (6)
  1. GRISEOFULVIN MICROSIZE [Suspect]
     Active Substance: GRISEOFULVIN
     Indication: Tinea capitis
     Dosage: OTHER QUANTITY : 1 TABLET(S);?FREQUENCY : TWICE A DAY;?
     Route: 048
     Dates: start: 20220430, end: 20220509
  2. GRISEOFULVIN MICROSIZE [Suspect]
     Active Substance: GRISEOFULVIN
     Indication: Body tinea
  3. GRISEOFULVIN MICROSIZE [Suspect]
     Active Substance: GRISEOFULVIN
     Indication: Tinea pedis
  4. ALBUTEROL [Concomitant]
     Active Substance: ALBUTEROL
  5. ZYRTEC [Concomitant]
     Active Substance: CETIRIZINE HYDROCHLORIDE
  6. FLONASE [Concomitant]
     Active Substance: FLUTICASONE PROPIONATE

REACTIONS (4)
  - Drug ineffective [None]
  - Rash [None]
  - Rash [None]
  - Rash macular [None]

NARRATIVE: CASE EVENT DATE: 20220510
